FAERS Safety Report 18557774 (Version 1)
Quarter: 2020Q4

REPORT INFORMATION
  Report Type: Spontaneous
  Country: DE (occurrence: DE)
  Receive Date: 20201130
  Receipt Date: 20201130
  Transmission Date: 20210114
  Serious: Yes (Other)
  Sender: FDA-Public Use
  Company Number: DE-009507513-1701DEU006307

PATIENT
  Age: 30 Year
  Sex: Male

DRUGS (1)
  1. PROPECIA [Suspect]
     Active Substance: FINASTERIDE
     Indication: ALOPECIA
     Dosage: 1 MILLIGRAM (MG), EVERY DAY (QD)
     Route: 048
     Dates: start: 2007, end: 201510

REACTIONS (26)
  - Suicidal ideation [Unknown]
  - Dizziness [Unknown]
  - Dysuria [Unknown]
  - Erectile dysfunction [Not Recovered/Not Resolved]
  - Abdominal pain [Unknown]
  - Fatigue [Not Recovered/Not Resolved]
  - Psychotic disorder [Not Recovered/Not Resolved]
  - Disturbance in attention [Unknown]
  - Amnesia [Unknown]
  - Arthralgia [Unknown]
  - Myalgia [Not Recovered/Not Resolved]
  - Thinking abnormal [Unknown]
  - Diarrhoea [Unknown]
  - Ejaculation disorder [Unknown]
  - Genital hypoaesthesia [Unknown]
  - Gastrointestinal disorder [Unknown]
  - Palpitations [Unknown]
  - Hormone level abnormal [Unknown]
  - Prostatitis [Unknown]
  - Vision blurred [Unknown]
  - Panic attack [Not Recovered/Not Resolved]
  - Depression [Not Recovered/Not Resolved]
  - Weight decreased [Unknown]
  - Feeling abnormal [Not Recovered/Not Resolved]
  - Post 5-alpha-reductase inhibitor syndrome [Not Recovered/Not Resolved]
  - Blood pressure increased [Unknown]

NARRATIVE: CASE EVENT DATE: 201512
